FAERS Safety Report 21094627 (Version 2)
Quarter: 2022Q3

REPORT INFORMATION
  Report Type: Spontaneous
  Country: US (occurrence: US)
  Receive Date: 20220718
  Receipt Date: 20220726
  Transmission Date: 20221026
  Serious: Yes (Hospitalization)
  Sender: FDA-Public Use
  Company Number: US-GE HEALTHCARE-2022CSU004894

PATIENT
  Age: 60 Year
  Sex: Male
  Weight: 86.168 kg

DRUGS (8)
  1. OMNIPAQUE [Suspect]
     Active Substance: IOHEXOL
     Indication: Catheterisation cardiac
     Dosage: 130 ML, SINGLE
     Route: 013
     Dates: start: 20220617, end: 20220617
  2. OMNIPAQUE [Suspect]
     Active Substance: IOHEXOL
     Indication: Percutaneous coronary intervention
  3. OMNIPAQUE [Suspect]
     Active Substance: IOHEXOL
     Indication: Coronary artery disease
  4. OMNIPAQUE [Suspect]
     Active Substance: IOHEXOL
     Indication: Angina pectoris
  5. BRILINTA [Concomitant]
     Active Substance: TICAGRELOR
     Dosage: 90 MG, BID
     Route: 048
  6. GABAPENTIN [Concomitant]
     Active Substance: GABAPENTIN
     Indication: Neuropathy peripheral
     Dosage: 300 MG, BID
     Route: 048
  7. Olmesartan amlodipin hct beta [Concomitant]
     Indication: Hypertension
     Dosage: 40/10/12.5MM, DAILY
     Route: 048
  8. CHLORZOXAZONE [Concomitant]
     Active Substance: CHLORZOXAZONE
     Indication: Muscle spasms
     Dosage: 500 MG, TID
     Route: 048

REACTIONS (1)
  - Embolic stroke [Recovered/Resolved with Sequelae]

NARRATIVE: CASE EVENT DATE: 20220617
